FAERS Safety Report 16032230 (Version 1)
Quarter: 2019Q1

REPORT INFORMATION
  Report Type: Report from Study
  Country: US (occurrence: US)
  Receive Date: 20190304
  Receipt Date: 20190304
  Transmission Date: 20190418
  Serious: Yes (Hospitalization, Other)
  Sender: FDA-Public Use
  Company Number: US-GILEAD-2019-0386774

PATIENT
  Age: 56 Year
  Sex: Female

DRUGS (13)
  1. BLINDED IDELALISIB [Suspect]
     Active Substance: IDELALISIB
     Indication: B-CELL LYMPHOMA
     Dosage: 100 MG, BID
     Route: 048
     Dates: start: 20181217, end: 20190115
  2. SULFAMETHOXAZOLE AND TRIMETHOPRIM [Concomitant]
     Active Substance: SULFAMETHOXAZOLE\TRIMETHOPRIM
  3. DIGOXIN. [Concomitant]
     Active Substance: DIGOXIN
  4. HYDROCORTISONE;NYSTATIN;ZINC OXIDE [Concomitant]
  5. METRONIDAZOLE. [Concomitant]
     Active Substance: METRONIDAZOLE
  6. AMIODARONE [Concomitant]
     Active Substance: AMIODARONE
  7. PANTOPRAZOLE [Concomitant]
     Active Substance: PANTOPRAZOLE
  8. VITAMIN B COMPLEX W VITAMIN C + FOLIC ACID [Concomitant]
  9. ACYCLOVIR [ACICLOVIR] [Concomitant]
     Active Substance: ACYCLOVIR
  10. MORPHINE [Concomitant]
     Active Substance: MORPHINE
  11. MICAFUNGIN. [Concomitant]
     Active Substance: MICAFUNGIN SODIUM
  12. BLINDED PLACEBO [Suspect]
     Active Substance: INVESTIGATIONAL PRODUCT
     Indication: B-CELL LYMPHOMA
     Dosage: 100 MG, BID
     Route: 048
     Dates: start: 20181217, end: 20190115
  13. HEPARIN [Concomitant]
     Active Substance: HEPARIN SODIUM

REACTIONS (6)
  - Graft versus host disease in gastrointestinal tract [Unknown]
  - Diarrhoea [Not Recovered/Not Resolved]
  - Vomiting [Not Recovered/Not Resolved]
  - Nausea [Not Recovered/Not Resolved]
  - Clostridium difficile colitis [Unknown]
  - Cholelithiasis [Unknown]

NARRATIVE: CASE EVENT DATE: 20190117
